FAERS Safety Report 5704563-5 (Version None)
Quarter: 2008Q2

REPORT INFORMATION
  Report Type: 
  Country: None (occurrence: None)
  Receive Date: 20080411
  Receipt Date: 20080411
  Transmission Date: 20081010
  Serious: Yes (Death)
  Sender: FDA-Public Use
  Company Number: None

PATIENT
  Age: 56 Year
  Sex: Female
  Weight: 69.8539 kg

DRUGS (3)
  1. ALTEPLASE  8MG [Suspect]
     Indication: PERIPHERAL VASCULAR DISORDER
     Dosage: ALTEPLASE 0.5 UNITS/HOUR
     Dates: start: 20080303, end: 20080304
  2. PLAVIX [Suspect]
     Dosage: PLAVIX 300MG PO
     Route: 048
     Dates: start: 20080305, end: 20080306
  3. HEPARIN DRIP/ D5W [Concomitant]

REACTIONS (5)
  - ANAEMIA [None]
  - CARDIO-RESPIRATORY ARREST [None]
  - CEREBROVASCULAR DISORDER [None]
  - INTRA-ABDOMINAL HAEMORRHAGE [None]
  - RETROPERITONEAL HAEMORRHAGE [None]
